FAERS Safety Report 16096001 (Version 2)
Quarter: 2019Q2

REPORT INFORMATION
  Report Type: Spontaneous
  Country: US (occurrence: US)
  Receive Date: 20190320
  Receipt Date: 20190624
  Transmission Date: 20190711
  Serious: No
  Sender: FDA-Public Use
  Company Number: US-TEVA-2019-US-1028070

PATIENT
  Age: 58 Year
  Sex: Female
  Weight: 88 kg

DRUGS (5)
  1. NAPROXEN. [Concomitant]
     Active Substance: NAPROXEN
  2. AJOVY [Suspect]
     Active Substance: FREMANEZUMAB-VFRM
     Indication: MIGRAINE
     Dosage: 225 MG X 3 INJECTIONS (675 MG) EVERY 3 MONTHS (QUARTERLY)
     Route: 058
     Dates: start: 201810
  3. LEVOTHYROXINE. [Concomitant]
     Active Substance: LEVOTHYROXINE
  4. OLANZAPINE. [Concomitant]
     Active Substance: OLANZAPINE
  5. BOTOX [Concomitant]
     Active Substance: ONABOTULINUMTOXINA

REACTIONS (2)
  - Headache [Unknown]
  - Migraine [Not Recovered/Not Resolved]
